FAERS Safety Report 23636148 (Version 1)
Quarter: 2024Q1

REPORT INFORMATION
  Report Type: Spontaneous
  Country: DE (occurrence: DE)
  Receive Date: 20240315
  Receipt Date: 20240315
  Transmission Date: 20240409
  Serious: Yes (Hospitalization, Other)
  Sender: FDA-Public Use
  Company Number: DE-AMGEN-DEUSP2024050606

PATIENT

DRUGS (1)
  1. APREMILAST [Suspect]
     Active Substance: APREMILAST
     Indication: Behcet^s syndrome
     Dosage: UNK
     Route: 065

REACTIONS (6)
  - Behcet^s syndrome [Unknown]
  - Emotional disorder [Unknown]
  - Ill-defined disorder [Unknown]
  - Fatigue [Unknown]
  - Pain [Unknown]
  - Sleep disorder [Unknown]
